FAERS Safety Report 5205259-9 (Version None)
Quarter: 2007Q1

REPORT INFORMATION
  Report Type: 
  Country: None (occurrence: None)
  Receive Date: 20070108
  Receipt Date: 20070102
  Transmission Date: 20070707
  Serious: Yes (Hospitalization)
  Sender: FDA-Public Use
  Company Number: 2006SP008583

PATIENT
  Age: 64 Year
  Sex: Male
  Weight: 65 kg

DRUGS (2)
  1. BETAMETHASONE DIPROPIONATE [Suspect]
     Indication: PSORIASIS
  2. RAPTIVA [Suspect]
     Indication: PSORIASIS
     Dosage: 65 MG; QW; SC
     Route: 058
     Dates: start: 20060224

REACTIONS (13)
  - ALOPECIA UNIVERSALIS [None]
  - ARTHRALGIA [None]
  - BLOOD ALKALINE PHOSPHATASE INCREASED [None]
  - CONDITION AGGRAVATED [None]
  - DERMATITIS EXFOLIATIVE [None]
  - DRUG INEFFECTIVE [None]
  - EOSINOPHILIA [None]
  - ERYTHRODERMIC PSORIASIS [None]
  - GAMMA-GLUTAMYLTRANSFERASE INCREASED [None]
  - HYPERKERATOSIS [None]
  - HYPOALBUMINAEMIA [None]
  - LYMPHADENOPATHY [None]
  - PSORIASIS [None]
